FAERS Safety Report 15473923 (Version 2)
Quarter: 2019Q1

REPORT INFORMATION
  Report Type: Spontaneous
  Country: US (occurrence: US)
  Receive Date: 20181008
  Receipt Date: 20190117
  Transmission Date: 20190417
  Serious: No
  Sender: FDA-Public Use
  Company Number: US-SA-2018SA272880

PATIENT
  Age: 58 Year
  Sex: Female

DRUGS (1)
  1. SOLIQUA 100/33 [Suspect]
     Active Substance: INSULIN GLARGINE\LIXISENATIDE
     Indication: TYPE 2 DIABETES MELLITUS
     Dosage: 25 U, QD

REACTIONS (5)
  - Blood glucose increased [Unknown]
  - Malaise [Unknown]
  - Device breakage [Unknown]
  - Device leakage [Unknown]
  - Product dose omission [Unknown]
